FAERS Safety Report 6376783-0 (Version None)
Quarter: 2009Q3

REPORT INFORMATION
  Report Type: 
  Country: None (occurrence: None)
  Receive Date: 20090925
  Receipt Date: 20090917
  Transmission Date: 20100115
  Serious: Yes (Hospitalization)
  Sender: FDA-Public Use
  Company Number: FR-ASTRAZENECA-2009SE13746

PATIENT
  Age: 12169 Day
  Sex: Female

DRUGS (4)
  1. MOPRAL [Suspect]
     Indication: PROPHYLAXIS AGAINST GASTROINTESTINAL ULCER
     Route: 048
     Dates: start: 20090528, end: 20090530
  2. NEXEN [Suspect]
     Indication: POST-TRAUMATIC PAIN
     Route: 048
     Dates: start: 20090528, end: 20090530
  3. MYOLASTAN [Concomitant]
     Dates: start: 20090529
  4. ANALGESICS [Concomitant]
     Dates: start: 20090522

REACTIONS (1)
  - ANTIDIURETIC HORMONE ABNORMALITY [None]
